FAERS Safety Report 5250754-X (Version None)
Quarter: 2007Q1

REPORT INFORMATION
  Report Type: 
  Country: None (occurrence: None)
  Receive Date: 20070228
  Receipt Date: 20070222
  Transmission Date: 20070707
  Serious: Yes (Life-Threatening)
  Sender: FDA-Public Use
  Company Number: US-BRACCO-BDI-009122

PATIENT
  Sex: Male

DRUGS (4)
  1. ISOVUE-300 [Suspect]
     Route: 050
     Dates: start: 20070208, end: 20070208
  2. ISOVUE-300 [Suspect]
     Indication: BACK PAIN
     Route: 050
     Dates: start: 20070208, end: 20070208
  3. KEFZOL [Concomitant]
     Route: 050
     Dates: start: 20070208, end: 20070208
  4. DILAUDID [Concomitant]
     Route: 050
     Dates: start: 20070208, end: 20070208

REACTIONS (2)
  - ANAPHYLACTOID REACTION [None]
  - RHABDOMYOLYSIS [None]
